FAERS Safety Report 4707972-6 (Version None)
Quarter: 2005Q2

REPORT INFORMATION
  Report Type: 
  Country: None (occurrence: None)
  Receive Date: 20050629
  Receipt Date: 20050319
  Transmission Date: 20051028
  Serious: No
  Sender: FDA-Public Use
  Company Number: 05P-163-0294752-00

PATIENT
  Age: 81 Year
  Sex: Female
  Weight: 54.4316 kg

DRUGS (3)
  1. HUMIRA [Suspect]
     Indication: RHEUMATOID ARTHRITIS
     Dosage: 40 MG, 1 IN 2 WK, SUBCUTANEOUS
     Route: 058
     Dates: start: 20050101, end: 20050301
  2. DILTIAZEM [Concomitant]
  3. RISEDRONATE SODIUM [Concomitant]

REACTIONS (3)
  - DYSGEUSIA [None]
  - STOMATITIS [None]
  - WEIGHT DECREASED [None]
